FAERS Safety Report 18649158 (Version 1)
Quarter: 2020Q4

REPORT INFORMATION
  Report Type: Spontaneous
  Country: AU (occurrence: AU)
  Receive Date: 20201222
  Receipt Date: 20201222
  Transmission Date: 20210114
  Serious: Yes (Other)
  Sender: FDA-Public Use
  Company Number: AU-IPSEN BIOPHARMACEUTICALS, INC.-2020-19890

PATIENT
  Sex: Female

DRUGS (4)
  1. DYSPORT [Suspect]
     Active Substance: ABOBOTULINUMTOXINA
     Indication: SKIN WRINKLING
     Dosage: 100 UNITS (50 IU FROWN (GLABELLA) LINES,50 IU SPREAD OUT BETWEEN FOREHEAD AND EYEBROW LIFT)
     Route: 065
     Dates: start: 20200928, end: 20200928
  2. DYSPORT [Suspect]
     Active Substance: ABOBOTULINUMTOXINA
     Indication: OFF LABEL USE
  3. DYSPORT [Suspect]
     Active Substance: ABOBOTULINUMTOXINA
     Indication: FACE LIFT
  4. DYSPORT [Suspect]
     Active Substance: ABOBOTULINUMTOXINA
     Indication: SKIN WRINKLING

REACTIONS (9)
  - Ageusia [Not Recovered/Not Resolved]
  - Anxiety [Unknown]
  - Ill-defined disorder [Unknown]
  - Off label use [Unknown]
  - Dry mouth [Unknown]
  - Hypoaesthesia [Not Recovered/Not Resolved]
  - Paraesthesia [Not Recovered/Not Resolved]
  - Blood creatine phosphokinase increased [Unknown]
  - Depression [Unknown]

NARRATIVE: CASE EVENT DATE: 2020
